FAERS Safety Report 6003540-7 (Version None)
Quarter: 2008Q4

REPORT INFORMATION
  Report Type: 
  Country: None (occurrence: None)
  Receive Date: 20081216
  Receipt Date: 20081205
  Transmission Date: 20090506
  Serious: Yes (Hospitalization)
  Sender: FDA-Public Use
  Company Number: US-RB-007130-08

PATIENT
  Age: 43 Year
  Sex: Male

DRUGS (2)
  1. BUPROPION HCL [Suspect]
  2. DEXTROMETHORPHAN HYDROBROMIDE [Suspect]

REACTIONS (17)
  - AGGRESSION [None]
  - AGITATION [None]
  - CONFUSIONAL STATE [None]
  - DYSKINESIA [None]
  - FEELING COLD [None]
  - GASTROINTESTINAL SOUNDS ABNORMAL [None]
  - HYPERHIDROSIS [None]
  - MOVEMENT DISORDER [None]
  - MUSCLE RIGIDITY [None]
  - MYDRIASIS [None]
  - MYOCLONUS [None]
  - PYREXIA [None]
  - RESTLESSNESS [None]
  - SEROTONIN SYNDROME [None]
  - SUPRAVENTRICULAR TACHYCARDIA [None]
  - TACHYCARDIA [None]
  - TREMOR [None]
